FAERS Safety Report 12183361 (Version 1)
Quarter: 2016Q1

REPORT INFORMATION
  Report Type: Spontaneous
  Country: US (occurrence: None)
  Receive Date: 20160315
  Receipt Date: 20160315
  Transmission Date: 20160526
  Serious: No
  Sender: FDA-Public Use
  Company Number: None

PATIENT
  Age: 35 Year
  Sex: Male
  Weight: 68.49 kg

DRUGS (1)
  1. TAMIFLU [Suspect]
     Active Substance: OSELTAMIVIR PHOSPHATE
     Indication: INFLUENZA
     Dosage: 2 PILLS TAKEN BY MOUTH
     Route: 048
     Dates: start: 20160313, end: 20160314

REACTIONS (4)
  - Hallucination [None]
  - Vomiting [None]
  - Condition aggravated [None]
  - Influenza [None]

NARRATIVE: CASE EVENT DATE: 20160313
